FAERS Safety Report 5689632-0 (Version None)
Quarter: 2008Q1

REPORT INFORMATION
  Report Type: 
  Country: None (occurrence: None)
  Receive Date: 20080331
  Receipt Date: 20080328
  Transmission Date: 20080703
  Serious: Yes (Death)
  Sender: FDA-Public Use
  Company Number: BR-BOEHRINGER INGELHEIM GMBH, GERMANY-2008-BP-04554BR

PATIENT
  Sex: Female
  Weight: 52.5 kg

DRUGS (1)
  1. TIPRANAVIR / RITONAVIR CAPSULES [Suspect]
     Indication: HIV INFECTION
     Route: 048
     Dates: start: 20060127

REACTIONS (1)
  - HIV INFECTION [None]
